FAERS Safety Report 8372699-9 (Version None)
Quarter: 2012Q2

REPORT INFORMATION
  Report Type: 
  Country: None (occurrence: None)
  Receive Date: 20120521
  Receipt Date: 20120514
  Transmission Date: 20120825
  Serious: Yes (Hospitalization, Other)
  Sender: FDA-Public Use
  Company Number: BR-SANOFI-AVENTIS-2012SA034401

PATIENT
  Age: 60 Year
  Sex: Female
  Weight: 88 kg

DRUGS (6)
  1. HUMALOG [Concomitant]
  2. DRUG USED IN DIABETES [Concomitant]
  3. ALL OTHER THERAPEUTIC PRODUCTS [Concomitant]
     Indication: DEPRESSION
  4. LANTUS [Suspect]
     Indication: TYPE 1 DIABETES MELLITUS
     Route: 058
     Dates: start: 20060101
  5. SIMVASTATIN [Concomitant]
  6. OTHER ANTIHYPERTENSIVES [Concomitant]

REACTIONS (8)
  - DIZZINESS [None]
  - MOVEMENT DISORDER [None]
  - CARDIAC DISORDER [None]
  - RENAL FAILURE [None]
  - DIPLOPIA [None]
  - CEREBROVASCULAR ACCIDENT [None]
  - THYROID FUNCTION TEST ABNORMAL [None]
  - MYOCARDIAL INFARCTION [None]
